FAERS Safety Report 24941864 (Version 1)
Quarter: 2025Q1

REPORT INFORMATION
  Report Type: Spontaneous
  Country: CN (occurrence: CN)
  Receive Date: 20250207
  Receipt Date: 20250207
  Transmission Date: 20250409
  Serious: Yes (Hospitalization, Other)
  Sender: CHATTEM
  Company Number: CN-OPELLA-2025OHG003597

PATIENT
  Age: 68 Year
  Sex: Female
  Weight: 68 kg

DRUGS (9)
  1. LEVOCETIRIZINE HYDROCHLORIDE [Suspect]
     Active Substance: LEVOCETIRIZINE HYDROCHLORIDE
     Indication: Dermatitis allergic
     Dosage: (QD), ONCE DAILY
     Route: 048
     Dates: end: 20241111
  2. LEVOCETIRIZINE HYDROCHLORIDE [Suspect]
     Active Substance: LEVOCETIRIZINE HYDROCHLORIDE
     Dosage: QD, ONCE DAILY
     Route: 065
     Dates: end: 20241215
  3. LEVOCETIRIZINE HYDROCHLORIDE [Suspect]
     Active Substance: LEVOCETIRIZINE HYDROCHLORIDE
     Dosage: (QD), ONCE DAILY
     Route: 048
     Dates: end: 20241206
  4. TUCATINIB [Suspect]
     Active Substance: TUCATINIB
     Indication: Breast cancer
     Route: 048
     Dates: end: 20231112
  5. METHYLPREDNISOLONE [Suspect]
     Active Substance: METHYLPREDNISOLONE
     Indication: Dermatitis allergic
     Dosage: 8 MILLIGRAM, ONCE DAILY, QD
     Route: 048
     Dates: end: 20241206
  6. EBASTINE [Suspect]
     Active Substance: EBASTINE
     Indication: Dermatitis allergic
     Dosage: 20 MILLIGRAM, ONCE DAILY, QD
     Route: 048
     Dates: end: 20241206
  7. EBASTINE [Suspect]
     Active Substance: EBASTINE
     Dosage: 10 MILLIGRAM, ONCE DAILY, QD
     Route: 065
     Dates: end: 20241215
  8. HERBALS [Suspect]
     Active Substance: HERBALS
     Indication: Dermatitis allergic
     Dosage: 2 GRAM, 3X/DAY (TID)
     Route: 048
     Dates: end: 20241129
  9. LORATADINE [Suspect]
     Active Substance: LORATADINE
     Indication: Dermatitis allergic
     Dosage: 10 MILLIGRAM, ONCE DAILY, QD
     Route: 048
     Dates: end: 20241211

REACTIONS (4)
  - Gamma-glutamyltransferase increased [Recovering/Resolving]
  - Dermatitis atopic [Recovering/Resolving]
  - Alanine aminotransferase increased [Recovering/Resolving]
  - Aspartate aminotransferase increased [Recovering/Resolving]

NARRATIVE: CASE EVENT DATE: 20240101
